FAERS Safety Report 5348237-1 (Version None)
Quarter: 2007Q2

REPORT INFORMATION
  Report Type: 
  Country: None (occurrence: None)
  Receive Date: 20070605
  Receipt Date: 20070529
  Transmission Date: 20071010
  Serious: Yes (Hospitalization)
  Sender: FDA-Public Use
  Company Number: 062-C5013-07051527

PATIENT
  Age: 65 Year
  Sex: Male

DRUGS (1)
  1. CC-5013\PLACEBO(LENALIDOMIDE) (CAPSULES) [Suspect]
     Indication: CHRONIC LYMPHOCYTIC LEUKAEMIA
     Dosage: ORAL
     Route: 048
     Dates: start: 20070515, end: 20070529

REACTIONS (1)
  - TUMOUR LYSIS SYNDROME [None]
